FAERS Safety Report 9671819 (Version 2)
Quarter: 2013Q4

REPORT INFORMATION
  Report Type: Spontaneous
  Country: JP (occurrence: JP)
  Receive Date: 20131106
  Receipt Date: 20131106
  Transmission Date: 20140711
  Serious: Yes (Hospitalization, Disabling)
  Sender: FDA-Public Use
  Company Number: JP-JNJFOC-20131007646

PATIENT
  Age: 63 Year
  Sex: Male
  Weight: 67 kg

DRUGS (4)
  1. XARELTO [Suspect]
     Indication: ATRIAL FIBRILLATION
     Route: 048
     Dates: start: 20130918, end: 20130918
  2. XARELTO [Suspect]
     Indication: EMBOLIC STROKE
     Route: 048
     Dates: start: 20130918, end: 20130918
  3. TAKEPRON [Concomitant]
     Indication: PROPHYLAXIS AGAINST GASTROINTESTINAL ULCER
     Route: 048
     Dates: start: 20130918, end: 20130918
  4. JANUVIA [Concomitant]
     Indication: HYPERGLYCAEMIA
     Route: 048
     Dates: start: 20130918, end: 20130918

REACTIONS (2)
  - Haemorrhagic infarction [Recovered/Resolved with Sequelae]
  - Cerebral infarction [Recovered/Resolved with Sequelae]
